FAERS Safety Report 16351571 (Version 4)
Quarter: 2019Q3

REPORT INFORMATION
  Report Type: Report from Study
  Country: CA (occurrence: CA)
  Receive Date: 20190524
  Receipt Date: 20190718
  Transmission Date: 20191004
  Serious: Yes (Other)
  Sender: FDA-Public Use
  Company Number: CA-ROCHE-2275382

PATIENT
  Age: 66 Year
  Sex: Female

DRUGS (11)
  1. CORTISONE [Concomitant]
     Active Substance: CORTISONE
     Route: 048
  2. RITUXAN [Suspect]
     Active Substance: RITUXIMAB
     Route: 042
     Dates: start: 20190509
  3. BENADRYL [Suspect]
     Active Substance: DIPHENHYDRAMINE HYDROCHLORIDE
     Indication: PREMEDICATION
     Route: 048
     Dates: start: 20190509, end: 20190509
  4. TYLENOL [Concomitant]
     Active Substance: ACETAMINOPHEN
  5. FOLIC ACID. [Concomitant]
     Active Substance: FOLIC ACID
  6. RITUXAN [Suspect]
     Active Substance: RITUXIMAB
     Indication: RHEUMATOID ARTHRITIS
     Route: 042
     Dates: start: 2015
  7. METHOTREXATE. [Concomitant]
     Active Substance: METHOTREXATE
  8. NORMAL SALINE [Concomitant]
     Active Substance: SODIUM CHLORIDE
  9. REACTINE [CETIRIZINE HYDROCHLORIDE] [Concomitant]
     Active Substance: CETIRIZINE HYDROCHLORIDE
     Route: 048
  10. SOLU-MEDROL [Suspect]
     Active Substance: METHYLPREDNISOLONE SODIUM SUCCINATE
     Indication: PREMEDICATION
     Route: 042
     Dates: start: 20190509, end: 20190509
  11. BENADRYL [Suspect]
     Active Substance: DIPHENHYDRAMINE HYDROCHLORIDE
     Indication: NAUSEA
     Route: 042
     Dates: start: 20190708

REACTIONS (11)
  - Blood pressure systolic increased [Unknown]
  - Oxygen saturation decreased [Unknown]
  - Loss of consciousness [Unknown]
  - Off label use [Unknown]
  - Product use issue [Unknown]
  - Extranodal marginal zone B-cell lymphoma (MALT type) [Unknown]
  - Anaphylactic shock [Recovered/Resolved]
  - Vomiting [Unknown]
  - Infusion related reaction [Not Recovered/Not Resolved]
  - Adverse drug reaction [Unknown]
  - Blood pressure systolic abnormal [Unknown]

NARRATIVE: CASE EVENT DATE: 2015
